FAERS Safety Report 4970156-0 (Version None)
Quarter: 2006Q2

REPORT INFORMATION
  Report Type: 
  Country: None (occurrence: None)
  Receive Date: 20060406
  Receipt Date: 20060329
  Transmission Date: 20061013
  Serious: Yes (Hospitalization)
  Sender: FDA-Public Use
  Company Number: 95-10-0277

PATIENT
  Age: 37 Year
  Sex: Female

DRUGS (3)
  1. CELESTONE SOLUSPAN [Suspect]
     Indication: BACK PAIN
     Dosage: 0.5 CC INTRAMUSCULAR
     Route: 030
     Dates: start: 19950814
  2. MARCAINE [Suspect]
     Indication: BACK PAIN
     Dosage: 1.0 CC INTRAMUSCULAR
     Route: 030
     Dates: start: 19950814
  3. MUSCLE RELAXANT [Concomitant]

REACTIONS (18)
  - ANXIETY [None]
  - ARTHRALGIA [None]
  - BACK PAIN [None]
  - BURNING SENSATION [None]
  - DIFFICULTY IN WALKING [None]
  - DRUG EFFECT DECREASED [None]
  - DRUG INEFFECTIVE [None]
  - DYSPHAGIA [None]
  - EPSTEIN-BARR VIRUS INFECTION [None]
  - FLUSHING [None]
  - HYPOAESTHESIA [None]
  - INFLUENZA LIKE ILLNESS [None]
  - MUSCLE TIGHTNESS [None]
  - PAIN IN EXTREMITY [None]
  - PARAESTHESIA [None]
  - PARVOVIRUS INFECTION [None]
  - PSYCHOTIC DISORDER [None]
  - THIRST [None]
